FAERS Safety Report 9157455 (Version 1)
Quarter: 2013Q1

REPORT INFORMATION
  Report Type: Spontaneous
  Country: US (occurrence: None)
  Receive Date: 20130308
  Receipt Date: 20130308
  Transmission Date: 20140127
  Serious: Yes (Life-Threatening)
  Sender: FDA-Public Use
  Company Number: None

PATIENT
  Age: 76 Year
  Sex: Female
  Weight: 65.77 kg

DRUGS (3)
  1. LISINOPRIL [Suspect]
     Indication: BLOOD PRESSURE INCREASED
     Dates: start: 2011, end: 2012
  2. METOPROLOL [Suspect]
     Indication: BLOOD PRESSURE INCREASED
     Dates: start: 20120921
  3. LOSARTAN [Suspect]
     Indication: BLOOD PRESSURE INCREASED
     Dosage: 100 MG 1 A DAY
     Dates: start: 20121024

REACTIONS (4)
  - Angioedema [None]
  - Scar [None]
  - Blood pressure increased [None]
  - Swelling face [None]
